FAERS Safety Report 8057522-4 (Version None)
Quarter: 2012Q1

REPORT INFORMATION
  Report Type: 
  Country: None (occurrence: None)
  Receive Date: 20120119
  Receipt Date: 20120112
  Transmission Date: 20120608
  Serious: Yes (Other)
  Sender: FDA-Public Use
  Company Number: US-ASTRAZENECA-2012SE02667

PATIENT
  Age: 53 Year
  Sex: Female
  Weight: 77.6 kg

DRUGS (8)
  1. NEXIUM [Suspect]
     Route: 048
     Dates: start: 20070101
  2. SINGULAIR [Concomitant]
  3. ADVAIR DISKUS 100/50 [Concomitant]
  4. SYMBICORT [Suspect]
     Route: 055
  5. ALBUTEROL [Concomitant]
  6. OXYGEN [Concomitant]
     Dosage: AT NIGHT
  7. NEXIUM [Suspect]
     Indication: GASTROOESOPHAGEAL REFLUX DISEASE
     Route: 048
     Dates: start: 20020101, end: 20070101
  8. AMBIEN [Concomitant]

REACTIONS (4)
  - ASTHMA [None]
  - DRUG INEFFECTIVE [None]
  - SCAR [None]
  - SPINAL DISORDER [None]
